FAERS Safety Report 21467137 (Version 1)
Quarter: 2022Q4

REPORT INFORMATION
  Report Type: Spontaneous
  Country: US (occurrence: US)
  Receive Date: 20221017
  Receipt Date: 20221017
  Transmission Date: 20230113
  Serious: No
  Sender: FDA-Public Use
  Company Number: US-BRISTOL-MYERS SQUIBB COMPANY-2022-121022

PATIENT
  Age: 68 Year
  Weight: 69.39 kg

DRUGS (1)
  1. POMALYST [Suspect]
     Active Substance: POMALIDOMIDE
     Indication: Plasma cell myeloma
     Dosage: FREQ - DAILY FOR 21DAYS
     Route: 048
     Dates: start: 20220324

REACTIONS (2)
  - Influenza [Unknown]
  - Pyrexia [Unknown]
